FAERS Safety Report 5120339-4 (Version None)
Quarter: 2006Q4

REPORT INFORMATION
  Report Type: 
  Country: None (occurrence: None)
  Receive Date: 20061002
  Receipt Date: 20061002
  Transmission Date: 20070319
  Serious: Yes (Hospitalization)
  Sender: FDA-Public Use
  Company Number: None

PATIENT
  Age: 74 Year
  Sex: Male

DRUGS (1)
  1. ENOXAPARIN [Suspect]

REACTIONS (3)
  - INJECTION SITE HAEMORRHAGE [None]
  - INTERNATIONAL NORMALISED RATIO DECREASED [None]
  - PLATELET COUNT DECREASED [None]
